FAERS Safety Report 16995693 (Version 2)
Quarter: 2019Q4

REPORT INFORMATION
  Report Type: Spontaneous
  Country: US (occurrence: US)
  Receive Date: 20191105
  Receipt Date: 20191105
  Transmission Date: 20200122
  Serious: Yes (Other)
  Sender: FDA-Public Use
  Company Number: US-CELGENEUS-USA-20191010865

PATIENT
  Sex: Female

DRUGS (1)
  1. REVLIMID [Suspect]
     Active Substance: LENALIDOMIDE
     Indication: PLASMA CELL MYELOMA
     Dosage: 25 MILLIGRAM
     Route: 048
     Dates: start: 20190419

REACTIONS (5)
  - Somnolence [Unknown]
  - Peripheral embolism [Unknown]
  - Gout [Unknown]
  - Exostosis [Unknown]
  - Fatigue [Unknown]

NARRATIVE: CASE EVENT DATE: 2019
